FAERS Safety Report 6208605-2 (Version None)
Quarter: 2009Q2

REPORT INFORMATION
  Report Type: 
  Country: None (occurrence: None)
  Receive Date: 20090529
  Receipt Date: 20090526
  Transmission Date: 20091009
  Serious: Yes (Other)
  Sender: FDA-Public Use
  Company Number: NO-ASTRAZENECA-2009SE01869

PATIENT
  Sex: Male

DRUGS (1)
  1. ZOLADEX [Suspect]
     Route: 058
     Dates: start: 20080211

REACTIONS (4)
  - ARTHRALGIA [None]
  - MUSCULAR WEAKNESS [None]
  - NECK PAIN [None]
  - PAIN IN EXTREMITY [None]
